FAERS Safety Report 9812378 (Version 1)
Quarter: 2014Q1

REPORT INFORMATION
  Report Type: Spontaneous
  Country: US (occurrence: US)
  Receive Date: 20140113
  Receipt Date: 20140113
  Transmission Date: 20141002
  Serious: Yes (Hospitalization)
  Sender: FDA-Public Use
  Company Number: US-BIOGENIDEC-2014BI001189

PATIENT
  Age: 17 Year
  Sex: Female

DRUGS (4)
  1. AVONEX [Suspect]
     Indication: MULTIPLE SCLEROSIS
     Route: 030
     Dates: start: 20130517
  2. TEGRETOL [Concomitant]
     Indication: CONVULSION
  3. FERROUS SULFATE [Concomitant]
  4. BACLOFEN [Concomitant]

REACTIONS (4)
  - Multiple sclerosis [Recovered/Resolved]
  - Dehydration [Recovered/Resolved]
  - Constipation [Unknown]
  - Gastrooesophageal reflux disease [Unknown]
